FAERS Safety Report 7219273-5 (Version None)
Quarter: 2011Q1

REPORT INFORMATION
  Report Type: 
  Country: None (occurrence: None)
  Receive Date: 20110111
  Receipt Date: 20110104
  Transmission Date: 20110831
  Serious: No
  Sender: FDA-Public Use
  Company Number: US-PFIZER INC-2011002406

PATIENT
  Sex: Female

DRUGS (3)
  1. ENBREL [Suspect]
     Dosage: UNK
  2. MTX [Suspect]
     Dosage: UNK
  3. SULFASALAZINE [Suspect]
     Dosage: UNK

REACTIONS (1)
  - INJECTION SITE REACTION [None]
